FAERS Safety Report 5243204-0 (Version None)
Quarter: 2007Q1

REPORT INFORMATION
  Report Type: 
  Country: None (occurrence: None)
  Receive Date: 20070221
  Receipt Date: 20070209
  Transmission Date: 20070707
  Serious: Yes (Hospitalization)
  Sender: FDA-Public Use
  Company Number: JP-PFIZER INC-2005087532

PATIENT
  Age: 29 Year
  Sex: Female

DRUGS (1)
  1. SULFASALAZINE [Suspect]
     Dosage: DAILY DOSE:1000MG
     Route: 048
     Dates: start: 20050323, end: 20050401

REACTIONS (5)
  - BLOOD LACTATE DEHYDROGENASE INCREASED [None]
  - GENERALISED ERYTHEMA [None]
  - LYMPHADENOPATHY [None]
  - PHARYNGOLARYNGEAL PAIN [None]
  - PYREXIA [None]
